FAERS Safety Report 5451761-4 (Version None)
Quarter: 2007Q3

REPORT INFORMATION
  Report Type: 
  Country: None (occurrence: None)
  Receive Date: 20070913
  Receipt Date: 20070903
  Transmission Date: 20080115
  Serious: Yes (Other)
  Sender: FDA-Public Use
  Company Number: FR-ABBOTT-07P-056-0415809-00

PATIENT
  Sex: Female
  Weight: 45 kg

DRUGS (5)
  1. KALETRA [Suspect]
     Indication: HIV TEST POSITIVE
     Dosage: 200MG/50MG
     Dates: start: 20070516, end: 20070518
  2. KALETRA [Suspect]
     Dates: start: 20070607
  3. SAQUINAVIR [Suspect]
     Indication: HIV TEST POSITIVE
     Dosage: 500MG
     Route: 048
     Dates: start: 20070516, end: 20070518
  4. SAQUINAVIR [Suspect]
     Route: 048
     Dates: start: 20070607
  5. ABACANAVIR/ATAZANAVIR [Concomitant]
     Indication: DRUG USE FOR UNKNOWN INDICATION
     Dates: start: 20070101

REACTIONS (6)
  - CONFUSIONAL STATE [None]
  - DISORIENTATION [None]
  - DYSGEUSIA [None]
  - FEELING COLD [None]
  - HYPERSOMNIA [None]
  - TRANCE [None]
